FAERS Safety Report 8415895-4 (Version None)
Quarter: 2012Q2

REPORT INFORMATION
  Report Type: 
  Country: None (occurrence: None)
  Receive Date: 20120606
  Receipt Date: 20120601
  Transmission Date: 20120825
  Serious: Yes (Hospitalization, Other)
  Sender: FDA-Public Use
  Company Number: AU-SANOFI-AVENTIS-2012SA038777

PATIENT
  Age: 55 Year
  Sex: Female

DRUGS (6)
  1. LIPITOR [Concomitant]
  2. VENTOLIN [Concomitant]
  3. OMEPRAZOLE [Concomitant]
  4. LANTUS [Suspect]
     Route: 065
     Dates: start: 20120501, end: 20120501
  5. SEROQUEL [Concomitant]
  6. LANTUS [Suspect]
     Route: 065

REACTIONS (1)
  - INTENTIONAL OVERDOSE [None]
